FAERS Safety Report 9204981 (Version 2)
Quarter: 2013Q4

REPORT INFORMATION
  Report Type: Spontaneous
  Country: US (occurrence: US)
  Receive Date: 20130402
  Receipt Date: 20131030
  Transmission Date: 20140711
  Serious: Yes (Hospitalization, Disabling)
  Sender: FDA-Public Use
  Company Number: US-BAYER-2013-039240

PATIENT
  Age: 41 Year
  Sex: Female

DRUGS (9)
  1. YAZ [Suspect]
     Dosage: UNK
     Dates: start: 2006, end: 2009
  2. YASMIN [Suspect]
     Dosage: UNK
     Dates: start: 2006, end: 2009
  3. OCELLA [Suspect]
     Dosage: UNK
     Dates: start: 2006, end: 2009
  4. ZOFRAN [Concomitant]
  5. DARVOCET [Concomitant]
  6. KETOROLAC [Concomitant]
  7. DILAUDID [Concomitant]
  8. HYDROCODONE/ACETAMINOPHEN [Concomitant]
  9. IRON [Concomitant]

REACTIONS (7)
  - Gallbladder disorder [None]
  - Cholecystitis acute [None]
  - Injury [None]
  - Deformity [None]
  - Anxiety [None]
  - Anhedonia [None]
  - Pain [None]
